FAERS Safety Report 5985927-1 (Version None)
Quarter: 2008Q4

REPORT INFORMATION
  Report Type: 
  Country: None (occurrence: None)
  Receive Date: 20081205
  Receipt Date: 20081205
  Transmission Date: 20090506
  Serious: No
  Sender: FDA-Public Use
  Company Number: None

PATIENT
  Sex: Male
  Weight: 69.4003 kg

DRUGS (6)
  1. RISPERDAL [Suspect]
     Indication: MENTAL RETARDATION
     Dosage: 1 MG Q AM ORAL 3 MG Q HS ORAL
     Route: 048
     Dates: start: 20080707
  2. RISPERDAL [Suspect]
     Indication: PSYCHOTIC DISORDER
     Dosage: 1 MG Q AM ORAL 3 MG Q HS ORAL
     Route: 048
     Dates: start: 20080707
  3. RISPERDAL [Suspect]
     Indication: MENTAL RETARDATION
     Dosage: 1 MG Q AM ORAL 3 MG Q HS ORAL
     Route: 048
     Dates: start: 20080924
  4. RISPERDAL [Suspect]
     Indication: PSYCHOTIC DISORDER
     Dosage: 1 MG Q AM ORAL 3 MG Q HS ORAL
     Route: 048
     Dates: start: 20080924
  5. CLINORIL [Concomitant]
  6. CARDURA [Concomitant]

REACTIONS (10)
  - CONDITION AGGRAVATED [None]
  - DECREASED INTEREST [None]
  - DISTURBANCE IN ATTENTION [None]
  - GRIMACING [None]
  - ILLUSION [None]
  - OSTEOARTHRITIS [None]
  - PAIN [None]
  - PERSONALITY CHANGE [None]
  - RHEUMATOID ARTHRITIS [None]
  - SPEECH DISORDER [None]
